FAERS Safety Report 4925089-2 (Version None)
Quarter: 2006Q1

REPORT INFORMATION
  Report Type: 
  Country: None (occurrence: None)
  Receive Date: 20060228
  Receipt Date: 20060127
  Transmission Date: 20060701
  Serious: Yes (Other)
  Sender: FDA-Public Use
  Company Number: JP-SP-2006-00184

PATIENT
  Age: 79 Year
  Sex: Male

DRUGS (8)
  1. IMMUCYST [Suspect]
     Indication: BLADDER CANCER
     Dosage: 3 TIMES ADMINISTERED
     Route: 043
     Dates: start: 20051228, end: 20060111
  2. IMMUCYST [Suspect]
     Dosage: 3 TIMES ADMINISTERED
     Route: 043
     Dates: start: 20051228, end: 20060111
  3. NIFEDIPINE [Concomitant]
     Route: 048
  4. METILDIGOXIN [Concomitant]
     Route: 048
  5. PRAVASTATIN SODIUM [Concomitant]
     Route: 048
  6. TRIAZOLAM [Concomitant]
     Route: 048
  7. MAPROTILINE HYDROCHLORIDE [Concomitant]
     Route: 048
     Dates: start: 20051230
  8. ETHYL LOFLAZEPATE [Concomitant]
     Route: 048
     Dates: start: 20051230

REACTIONS (1)
  - RASH [None]
